FAERS Safety Report 9465286 (Version 1)
Quarter: 2013Q3

REPORT INFORMATION
  Report Type: Spontaneous
  Country: US (occurrence: US)
  Receive Date: 20130819
  Receipt Date: 20130819
  Transmission Date: 20140515
  Serious: Yes (Hospitalization, Other)
  Sender: FDA-Public Use
  Company Number: PHHY2013US087129

PATIENT
  Age: 35 Year
  Sex: Female

DRUGS (5)
  1. FLUOXETINE [Suspect]
     Dosage: 60 MG, UNK
  2. TRIAMCINOLONE [Interacting]
     Route: 014
  3. LACTULOSE [Concomitant]
     Dosage: 10 MG/15 ML
  4. ZOLPIDEM [Concomitant]
     Dosage: 5 MG, UNK
  5. POTASSIUM CHLORIDE [Concomitant]
     Dosage: 10 MEQ, UNK

REACTIONS (11)
  - Peptic ulcer [Recovered/Resolved]
  - Abdominal pain [Recovered/Resolved]
  - Dyspepsia [Recovered/Resolved]
  - Vomiting [Recovered/Resolved]
  - Abdominal tenderness [Recovered/Resolved]
  - Alkalosis [Recovered/Resolved]
  - Hypokalaemia [Recovered/Resolved]
  - Cushingoid [Recovered/Resolved]
  - Adrenal suppression [Recovered/Resolved]
  - Electrolyte imbalance [Recovered/Resolved]
  - Drug interaction [Unknown]
